FAERS Safety Report 6699549-0 (Version None)
Quarter: 2010Q2

REPORT INFORMATION
  Report Type: 
  Country: None (occurrence: None)
  Receive Date: 20100427
  Receipt Date: 20100427
  Transmission Date: 20101027
  Serious: Yes (Other)
  Sender: FDA-Public Use
  Company Number: None

PATIENT
  Sex: Female
  Weight: 74.8435 kg

DRUGS (2)
  1. LEVAQUIN [Suspect]
     Indication: SINUSITIS
     Dosage: 250MG ONCE DAILY PO
     Route: 048
     Dates: start: 20091218, end: 20091227
  2. LEVAQUIN [Suspect]
     Indication: SINUSITIS
     Dosage: 250MG ONCE DAILY PO
     Route: 048
     Dates: start: 20100413, end: 20100422

REACTIONS (10)
  - ARTHRALGIA [None]
  - FATIGUE [None]
  - FEELING ABNORMAL [None]
  - IMPAIRED WORK ABILITY [None]
  - INFLUENZA [None]
  - INSOMNIA [None]
  - ORTHOSIS USER [None]
  - PAIN [None]
  - PANIC REACTION [None]
  - TENDON PAIN [None]
